FAERS Safety Report 6401713-2 (Version None)
Quarter: 2009Q4

REPORT INFORMATION
  Report Type: 
  Country: None (occurrence: None)
  Receive Date: 20091009
  Receipt Date: 20091009
  Transmission Date: 20100525
  Serious: No
  Sender: FDA-Public Use
  Company Number: None

PATIENT
  Age: 88 Year
  Sex: Male

DRUGS (1)
  1. IMIPENEM AND CILASTATIN SODIUM [Suspect]
     Dosage: 500 MG OTHER IV
     Route: 042
     Dates: start: 20090919

REACTIONS (2)
  - GRAND MAL CONVULSION [None]
  - TROPONIN INCREASED [None]
